FAERS Safety Report 11227951 (Version 5)
Quarter: 2016Q1

REPORT INFORMATION
  Report Type: Report from Study
  Country: BR (occurrence: BR)
  Receive Date: 20150630
  Receipt Date: 20160107
  Transmission Date: 20160525
  Serious: Yes (Hospitalization, Disabling, Other)
  Sender: FDA-Public Use
  Company Number: BR-ROCHE-1600444

PATIENT
  Age: 60 Year
  Sex: Female
  Weight: 58 kg

DRUGS (4)
  1. MABTHERA [Suspect]
     Active Substance: RITUXIMAB
     Route: 042
     Dates: start: 20150101, end: 20151208
  2. PARACETAMOL [Concomitant]
     Active Substance: ACETAMINOPHEN
     Route: 065
  3. MABTHERA [Suspect]
     Active Substance: RITUXIMAB
     Indication: RHEUMATOID ARTHRITIS
     Dosage: LAST DOSE 15/JAN/2015
     Route: 042
     Dates: start: 20110613
  4. PREDNISONE. [Concomitant]
     Active Substance: PREDNISONE
     Route: 065

REACTIONS (21)
  - Cholelithiasis [Unknown]
  - Abasia [Unknown]
  - Pain [Unknown]
  - Wound [Unknown]
  - Gastric infection [Not Recovered/Not Resolved]
  - Infarction [Unknown]
  - Hepatic infection [Unknown]
  - Pulmonary oedema [Unknown]
  - Hypoglycaemia [Recovered/Resolved]
  - Weight decreased [Unknown]
  - Gait disturbance [Not Recovered/Not Resolved]
  - Ulcer [Not Recovered/Not Resolved]
  - Eating disorder [Not Recovered/Not Resolved]
  - Diarrhoea [Unknown]
  - Nephrolithiasis [Not Recovered/Not Resolved]
  - Blood pressure increased [Recovering/Resolving]
  - Asthenia [Unknown]
  - Vomiting [Unknown]
  - Kidney infection [Not Recovered/Not Resolved]
  - Seizure [Unknown]
  - Diabetes mellitus [Recovering/Resolving]

NARRATIVE: CASE EVENT DATE: 201412
